FAERS Safety Report 18019209 (Version 1)
Quarter: 2020Q3

REPORT INFORMATION
  Report Type: Spontaneous
  Country: US (occurrence: US)
  Receive Date: 20200713
  Receipt Date: 20200713
  Transmission Date: 20201103
  Serious: No
  Sender: FDA-Public Use
  Company Number: None

PATIENT
  Age: 38 Year
  Sex: Male

DRUGS (1)
  1. DIVALPROEX [Suspect]
     Active Substance: DIVALPROEX SODIUM
     Dates: end: 20190314

REACTIONS (8)
  - Abdominal pain [None]
  - Nausea [None]
  - Dyspepsia [None]
  - Pain [None]
  - Lipase increased [None]
  - Vomiting [None]
  - Night sweats [None]
  - Chills [None]

NARRATIVE: CASE EVENT DATE: 20190311
